FAERS Safety Report 6031962-7 (Version None)
Quarter: 2008Q4

REPORT INFORMATION
  Report Type: 
  Country: None (occurrence: None)
  Receive Date: 20081231
  Receipt Date: 20081104
  Transmission Date: 20090506
  Serious: Yes (Other)
  Sender: FDA-Public Use
  Company Number: 177971USA

PATIENT
  Age: 42 Year
  Sex: Female

DRUGS (3)
  1. LAMOTRIGINE [Suspect]
     Dosage: 200 MG (100 MG, 2 IN 1 D) ,ORAL
     Route: 048
     Dates: start: 20080901
  2. LEVETIRACETAM [Suspect]
     Indication: CONVULSION
     Dosage: 400 MG (200 MG, 2 IN 1 D)
  3. CARBAMAZEPINE [Suspect]
     Dosage: 200-400MG/DAY

REACTIONS (1)
  - COMPLEX PARTIAL SEIZURES [None]
